FAERS Safety Report 22790468 (Version 2)
Quarter: 2024Q4

REPORT INFORMATION
  Report Type: Report from Study
  Country: US (occurrence: US)
  Receive Date: 20230805
  Receipt Date: 20241008
  Transmission Date: 20250115
  Serious: Yes (Other)
  Sender: NOVARTIS
  Company Number: US-002147023-NVSC2023US170558

PATIENT
  Sex: Male

DRUGS (1)
  1. ENTRESTO [Suspect]
     Active Substance: SACUBITRIL\VALSARTAN
     Indication: Product used for unknown indication
     Dosage: 1 DOSAGE FORM
     Route: 048

REACTIONS (7)
  - Deafness [Unknown]
  - Blood sodium decreased [Unknown]
  - Back disorder [Unknown]
  - Arthropathy [Unknown]
  - Mobility decreased [Unknown]
  - Fatigue [Unknown]
  - Adverse drug reaction [Unknown]
